FAERS Safety Report 24426207 (Version 1)
Quarter: 2024Q4

REPORT INFORMATION
  Report Type: Spontaneous
  Country: ES (occurrence: ES)
  Receive Date: 20241011
  Receipt Date: 20241011
  Transmission Date: 20250115
  Serious: Yes (Hospitalization, Other)
  Sender: AUROBINDO
  Company Number: ES-AEMPS-1572805

PATIENT
  Age: 69 Year
  Sex: Male

DRUGS (5)
  1. FLUCONAZOLE [Suspect]
     Active Substance: FLUCONAZOLE
     Indication: Product used for unknown indication
     Dosage: 400 MILLIGRAM, ONCE A DAY (400MG EVERY 24 HOURS)
     Route: 048
     Dates: start: 20240627, end: 20240708
  2. CIPROFLOXACIN [Suspect]
     Active Substance: CIPROFLOXACIN
     Indication: Abdominal sepsis
     Dosage: 400 MILLIGRAM, 3 TIMES A DAY (400MG EVERY 8 HOURS)
     Route: 042
     Dates: start: 20240624, end: 20240708
  3. PIPERACILLIN SODIUM\TAZOBACTAM SODIUM [Suspect]
     Active Substance: PIPERACILLIN SODIUM\TAZOBACTAM SODIUM
     Indication: Abdominal sepsis
     Dosage: 1 DOSAGE FORM, FOUR TIMES/DAY (PIPERACILLIN/TAZOBACTAM ACCORD) (1 VIAL EVERY 6 HOURS)
     Route: 042
     Dates: start: 20240615, end: 20240628
  4. AMOXICILLIN\CLAVULANIC ACID [Concomitant]
     Active Substance: AMOXICILLIN\CLAVULANIC ACID
     Indication: Abdominal sepsis
     Dosage: 1 DOSAGE FORM, 3 TIMES A DAY (1000MG/200MG CADA 8 HORAS)
     Route: 042
     Dates: start: 20240609, end: 20240615
  5. VANCOMYCIN [Concomitant]
     Active Substance: VANCOMYCIN
     Indication: Abdominal sepsis
     Dosage: 1 GRAM, TWO TIMES A DAY (1000MG EVERY 12 HOURS)
     Route: 042
     Dates: start: 20240616, end: 20240624

REACTIONS (1)
  - Hepatitis cholestatic [Recovering/Resolving]

NARRATIVE: CASE EVENT DATE: 20240627
